FAERS Safety Report 14224458 (Version 2)
Quarter: 2018Q1

REPORT INFORMATION
  Report Type: Report from Study
  Country: None (occurrence: CA)
  Receive Date: 20171127
  Receipt Date: 20180226
  Transmission Date: 20180508
  Serious: Yes (Other)
  Sender: FDA-Public Use
  Company Number: CA-ABBVIE-17K-028-2171588-00

PATIENT
  Sex: Male

DRUGS (2)
  1. HUMIRA [Suspect]
     Active Substance: ADALIMUMAB
     Route: 058
     Dates: start: 20180201
  2. HUMIRA [Suspect]
     Active Substance: ADALIMUMAB
     Indication: RHEUMATOID ARTHRITIS
     Route: 058
     Dates: start: 20161013, end: 2017

REACTIONS (5)
  - Osteoarthritis [Recovering/Resolving]
  - Post procedural infection [Recovered/Resolved]
  - Arthropathy [Recovering/Resolving]
  - Musculoskeletal stiffness [Unknown]
  - Arthritis infective [Recovered/Resolved]

NARRATIVE: CASE EVENT DATE: 2017
